FAERS Safety Report 13634538 (Version 1)
Quarter: 2017Q2

REPORT INFORMATION
  Report Type: Spontaneous
  Country: US (occurrence: US)
  Receive Date: 20170531
  Receipt Date: 20170531
  Transmission Date: 20170830
  Serious: No
  Sender: FDA-Public Use
  Company Number: US-ASTELLAS-1636973

PATIENT
  Age: 70 Year
  Sex: Female

DRUGS (7)
  1. COMPAZINE [Concomitant]
     Active Substance: PROCHLORPERAZINE MALEATE
  2. REMERON [Concomitant]
     Active Substance: MIRTAZAPINE
  3. LIPITOR [Concomitant]
     Active Substance: ATORVASTATIN CALCIUM
  4. PEPCID [Concomitant]
     Active Substance: FAMOTIDINE
  5. ATIVAN [Concomitant]
     Active Substance: LORAZEPAM
  6. DEPAKOTE [Concomitant]
     Active Substance: DIVALPROEX SODIUM
  7. TARCEVA [Suspect]
     Active Substance: ERLOTINIB HYDROCHLORIDE
     Indication: BRONCHIAL CARCINOMA
     Route: 048
     Dates: start: 20150912

REACTIONS (3)
  - Rash [Not Recovered/Not Resolved]
  - Myalgia [Unknown]
  - Arthralgia [Unknown]

NARRATIVE: CASE EVENT DATE: 20150924
